FAERS Safety Report 8190130-3 (Version None)
Quarter: 2012Q1

REPORT INFORMATION
  Report Type: 
  Country: None (occurrence: None)
  Receive Date: 20120305
  Receipt Date: 20120222
  Transmission Date: 20120608
  Serious: Yes (Hospitalization)
  Sender: FDA-Public Use
  Company Number: UTC-015928

PATIENT
  Age: 74 Year
  Sex: Female
  Weight: 46.82 kg

DRUGS (4)
  1. DIURETICS (DIURETICS) [Concomitant]
  2. REVATIO [Concomitant]
  3. ASPIRIN [Concomitant]
  4. TYVASO [Suspect]
     Indication: COR PULMONALE CHRONIC
     Dosage: 12 TO 54 MICROGRAMS (4 IN 1 D), INHALATION
     Route: 055
     Dates: start: 20110203

REACTIONS (2)
  - ANAEMIA [None]
  - PNEUMONIA [None]
